FAERS Safety Report 15413847 (Version 1)
Quarter: 2018Q3

REPORT INFORMATION
  Report Type: Report from Study
  Country: GB (occurrence: GB)
  Receive Date: 20180921
  Receipt Date: 20180921
  Transmission Date: 20181010
  Serious: Yes (Hospitalization, Other)
  Sender: FDA-Public Use
  Company Number: PHHO2018GB010074

PATIENT
  Age: 67 Year
  Sex: Female

DRUGS (4)
  1. INC424A [Suspect]
     Active Substance: RUXOLITINIB
     Indication: PRIMARY MYELOFIBROSIS
     Dosage: 10 MG, BID
     Route: 048
  2. LBH589 [Suspect]
     Active Substance: PANOBINOSTAT
     Indication: PRIMARY MYELOFIBROSIS
     Dosage: 10 MG, QW
     Route: 048
  3. INC424A [Suspect]
     Active Substance: RUXOLITINIB
     Indication: MYELOFIBROSIS
  4. LBH589 [Suspect]
     Active Substance: PANOBINOSTAT
     Indication: MYELOFIBROSIS

REACTIONS (3)
  - Glioma [Unknown]
  - Upper limb fracture [Unknown]
  - Speech disorder [Unknown]

NARRATIVE: CASE EVENT DATE: 20180901
